FAERS Safety Report 22713418 (Version 2)
Quarter: 2024Q1

REPORT INFORMATION
  Report Type: Report from Study
  Country: ES (occurrence: ES)
  Receive Date: 20230717
  Receipt Date: 20240304
  Transmission Date: 20240410
  Serious: Yes (Other)
  Sender: FDA-Public Use
  Company Number: ES-OTSUKA-2023_018371

PATIENT
  Sex: Male

DRUGS (17)
  1. TOLVAPTAN [Suspect]
     Active Substance: TOLVAPTAN
     Indication: Congenital cystic kidney disease
     Dosage: 90 MG
     Route: 048
     Dates: start: 20200630
  2. TOLVAPTAN [Suspect]
     Active Substance: TOLVAPTAN
     Dosage: 30 MG
     Route: 048
     Dates: start: 20200630
  3. TOLVAPTAN [Suspect]
     Active Substance: TOLVAPTAN
     Dosage: 45 MG
     Route: 048
     Dates: start: 20190626
  4. TOLVAPTAN [Suspect]
     Active Substance: TOLVAPTAN
     Dosage: 15 MG
     Route: 048
     Dates: start: 20190626
  5. TOLVAPTAN [Suspect]
     Active Substance: TOLVAPTAN
     Dosage: 60 MG
     Route: 048
     Dates: start: 20190727
  6. TOLVAPTAN [Suspect]
     Active Substance: TOLVAPTAN
     Dosage: 30 MG
     Route: 048
     Dates: start: 20190727
  7. TOLVAPTAN [Suspect]
     Active Substance: TOLVAPTAN
     Dosage: 90 MG
     Route: 048
     Dates: start: 20190821
  8. TOLVAPTAN [Suspect]
     Active Substance: TOLVAPTAN
     Dosage: 30 MG
     Route: 048
     Dates: start: 20190821
  9. TOLVAPTAN [Suspect]
     Active Substance: TOLVAPTAN
     Dosage: 60 MG
     Route: 048
     Dates: start: 20191115
  10. TOLVAPTAN [Suspect]
     Active Substance: TOLVAPTAN
     Dosage: 30 MG
     Route: 048
     Dates: start: 20191115
  11. TELMISARTAN [Concomitant]
     Active Substance: TELMISARTAN
     Indication: Hypertension
     Dosage: 80 MG, BID
     Route: 048
     Dates: start: 20191017, end: 20221117
  12. TELMISARTAN [Concomitant]
     Active Substance: TELMISARTAN
     Dosage: 40 MG, QD
     Route: 048
     Dates: start: 20190116, end: 20191017
  13. TELMISARTAN [Concomitant]
     Active Substance: TELMISARTAN
     Dosage: 80 MG, QD
     Route: 048
     Dates: start: 20150707, end: 20191017
  14. TELMISARTAN [Concomitant]
     Active Substance: TELMISARTAN
     Dosage: 40 MG, QD
     Route: 048
     Dates: start: 20221117
  15. BISOPROLOL [Concomitant]
     Active Substance: BISOPROLOL\BISOPROLOL FUMARATE
     Indication: Hypertension
     Dosage: 2.5 MG, QD
     Route: 048
     Dates: start: 20201219
  16. SIMVASTATIN [Concomitant]
     Active Substance: SIMVASTATIN
     Indication: Hypercholesterolaemia
     Dosage: 10 MG, QD
     Route: 048
     Dates: start: 20210319, end: 20221117
  17. SIMVASTATIN [Concomitant]
     Active Substance: SIMVASTATIN
     Dosage: 20 ?G, QD
     Route: 048
     Dates: start: 20221117

REACTIONS (1)
  - Syncope [Recovered/Resolved]

NARRATIVE: CASE EVENT DATE: 20220714
